FAERS Safety Report 7928195-3 (Version None)
Quarter: 2011Q4

REPORT INFORMATION
  Report Type: 
  Country: None (occurrence: None)
  Receive Date: 20111118
  Receipt Date: 20111110
  Transmission Date: 20120403
  Serious: Yes (Disabling, Other)
  Sender: FDA-Public Use
  Company Number: US-CELGENEUS-163-C5013-11071334

PATIENT
  Sex: Female
  Weight: 118.58 kg

DRUGS (10)
  1. K-TAB [Concomitant]
     Indication: SUPPLEMENTATION THERAPY
     Dosage: 20 MILLIGRAM
     Route: 048
  2. LANTUS [Concomitant]
     Dosage: 40 UNIT
     Route: 058
  3. CHERATUSSIN [Concomitant]
     Indication: COUGH
     Dosage: 40 UNIT
     Route: 058
  4. OMEPRAZOLE [Concomitant]
     Dosage: 20 MILLIGRAM
     Route: 048
  5. LENALIDOMIDE [Suspect]
     Indication: NON-HODGKIN'S LYMPHOMA
     Route: 048
     Dates: start: 20070416, end: 20070430
  6. LEVOTHROID [Concomitant]
     Indication: HYPOTHYROIDISM
     Dosage: 125 MICROGRAM
     Route: 048
  7. ALBUTEROL [Concomitant]
     Dosage: 2.5 MILLIGRAM
     Route: 065
  8. RAPAMUNE [Concomitant]
     Dosage: .5 MILLIGRAM
     Route: 065
  9. LASIX [Concomitant]
     Indication: HYPERTENSION
     Dosage: 20 MILLIGRAM
     Route: 048
  10. PREDNISONE TAB [Concomitant]
     Dosage: 10 MILLIGRAM
     Route: 048

REACTIONS (2)
  - ANAEMIA [None]
  - MYELODYSPLASTIC SYNDROME [None]
